FAERS Safety Report 25924556 (Version 2)
Quarter: 2025Q4

REPORT INFORMATION
  Report Type: Spontaneous
  Country: US (occurrence: US)
  Receive Date: 20251015
  Receipt Date: 20251112
  Transmission Date: 20260118
  Serious: Yes (Hospitalization, Other)
  Sender: TORRENT PHARMA INC.
  Company Number: US-TORRENT-00014559

PATIENT
  Sex: Male

DRUGS (2)
  1. VENXXIVA [Suspect]
     Active Substance: TIOPRONIN
     Indication: Cystinuria
     Dosage: VENXXIVA 100MG - TAKE 1 TABLET BY MOUTH THREE TIMES DAILY
     Route: 048
     Dates: start: 20250424
  2. VENXXIVA [Suspect]
     Active Substance: TIOPRONIN
     Indication: Cystinuria
     Dosage: VENXXIVA 300MG- TAKE 1 TABLET BY MOUTH THREE TIMES DAILY
     Route: 048
     Dates: start: 20250424

REACTIONS (2)
  - Nephrolithiasis [Recovered/Resolved]
  - Hydronephrosis [Recovered/Resolved]

NARRATIVE: CASE EVENT DATE: 20250101
